FAERS Safety Report 22538558 (Version 5)
Quarter: 2023Q4

REPORT INFORMATION
  Report Type: Report from Study
  Country: CL (occurrence: CL)
  Receive Date: 20230609
  Receipt Date: 20231231
  Transmission Date: 20240110
  Serious: Yes (Other)
  Sender: FDA-Public Use
  Company Number: CL-JNJFOC-20230367072

PATIENT
  Age: 71 Year
  Sex: Female

DRUGS (1)
  1. SIMPONI [Suspect]
     Active Substance: GOLIMUMAB
     Indication: Ankylosing spondylitis
     Route: 041
     Dates: start: 20180101

REACTIONS (19)
  - Pneumonia [Unknown]
  - Pulmonary oedema [Unknown]
  - Choking [Recovered/Resolved]
  - Neck pain [Unknown]
  - Headache [Unknown]
  - Tongue disorder [Unknown]
  - Vitamin D deficiency [Unknown]
  - Stress [Unknown]
  - Feeling cold [Unknown]
  - Fatigue [Unknown]
  - Productive cough [Recovered/Resolved]
  - Hyperhidrosis [Unknown]
  - Rales [Unknown]
  - Hypersensitivity [Unknown]
  - COVID-19 [Recovered/Resolved]
  - Emphysema [Recovering/Resolving]
  - Arthralgia [Unknown]
  - Nasopharyngitis [Recovering/Resolving]
  - Pain [Unknown]

NARRATIVE: CASE EVENT DATE: 20230101
